FAERS Safety Report 17732768 (Version 1)
Quarter: 2020Q2

REPORT INFORMATION
  Report Type: Spontaneous
  Country: BR (occurrence: BR)
  Receive Date: 20200501
  Receipt Date: 20200501
  Transmission Date: 20200714
  Serious: Yes (Other)
  Sender: FDA-Public Use
  Company Number: NVSC2020BR115472

PATIENT
  Sex: Male

DRUGS (1)
  1. TEGRETOL XR [Suspect]
     Active Substance: CARBAMAZEPINE
     Indication: TRIGEMINAL NEURALGIA
     Dosage: 50 CE, 2 TABLETS PER DAY, BUT ALREADY USED 3
     Route: 065

REACTIONS (3)
  - Malaise [Unknown]
  - Shock [Unknown]
  - Trismus [Unknown]
